FAERS Safety Report 8131038-9 (Version None)
Quarter: 2012Q1

REPORT INFORMATION
  Report Type: 
  Country: None (occurrence: None)
  Receive Date: 20120208
  Receipt Date: 20120208
  Transmission Date: 20120608
  Serious: Yes (Hospitalization)
  Sender: FDA-Public Use
  Company Number: None

PATIENT
  Age: 65 Year
  Sex: Male
  Weight: 91.4 kg

DRUGS (2)
  1. ETODOLAC [Suspect]
     Dosage: 500 MG BID PO
     Route: 048
     Dates: start: 20110622, end: 20111115
  2. LISINOPRIL [Suspect]
     Dosage: 20 MG BID PO
     Route: 048
     Dates: start: 20090331

REACTIONS (5)
  - ACIDOSIS [None]
  - HYPOTENSION [None]
  - HAEMODIALYSIS [None]
  - HYPERKALAEMIA [None]
  - RENAL FAILURE ACUTE [None]
